FAERS Safety Report 4380135-2 (Version None)
Quarter: 2004Q2

REPORT INFORMATION
  Report Type: 
  Country: None (occurrence: None)
  Receive Date: 20040616
  Receipt Date: 20040604
  Transmission Date: 20050107
  Serious: Yes (Death)
  Sender: FDA-Public Use
  Company Number: PANC00304001740

PATIENT
  Age: 52 Year
  Sex: Male
  Weight: 59.7 kg

DRUGS (12)
  1. CREON [Suspect]
     Indication: PANCREATIC CARCINOMA
     Dosage: 3 G DAILY PO
     Route: 048
     Dates: start: 19980302, end: 19980329
  2. FAMOTIDINE [Concomitant]
  3. EURODIN (ESTAZOLAM) [Concomitant]
  4. LOPERAMIDE HCL [Concomitant]
  5. LACTEC (LACTATD RINGERS SOLUTION0 [Concomitant]
  6. SOLDEM 3 A [Concomitant]
  7. PIPERACILLIN SODIUM [Concomitant]
  8. NEOLAMIN 3B [Concomitant]
  9. VITAMIN C(VITAMIN C) [Concomitant]
  10. CEFZON (CEFDINIR) [Concomitant]
  11. MIYA BM (MIYARI BACTERIA) [Concomitant]
  12. 5% GLUCOSE (GLUCOSE) [Concomitant]

REACTIONS (14)
  - BLOOD GLUCOSE INCREASED [None]
  - BLOOD PHOSPHORUS INCREASED [None]
  - CHOLANGITIS [None]
  - CONDITION AGGRAVATED [None]
  - GLUCOSE TOLERANCE IMPAIRED [None]
  - HAEMATOCRIT DECREASED [None]
  - MALAISE [None]
  - METASTASES TO LIVER [None]
  - NASOPHARYNGITIS [None]
  - NAUSEA [None]
  - PANCREATIC CARCINOMA RECURRENT [None]
  - POST PROCEDURAL COMPLICATION [None]
  - RHINORRHOEA [None]
  - TUMOUR MARKER INCREASED [None]
